FAERS Safety Report 19407231 (Version 3)
Quarter: 2024Q3

REPORT INFORMATION
  Report Type: Report from Study
  Country: GB (occurrence: GB)
  Receive Date: 20210612
  Receipt Date: 20240709
  Transmission Date: 20241016
  Serious: Yes (Other)
  Sender: ROCHE
  Company Number: GB-ROCHE-2845521

PATIENT
  Sex: Male

DRUGS (2)
  1. TOCILIZUMAB [Suspect]
     Active Substance: TOCILIZUMAB
     Indication: Rheumatoid arthritis
     Dosage: 162MG/0.9ML PER WEEK
     Route: 065
     Dates: start: 20201224
  2. TOCILIZUMAB [Suspect]
     Active Substance: TOCILIZUMAB
     Dosage: FREQUENCY: 1
     Route: 065
     Dates: start: 202012

REACTIONS (2)
  - Refusal of treatment by patient [Unknown]
  - Hernia [Unknown]
